FAERS Safety Report 24327789 (Version 1)
Quarter: 2024Q3

REPORT INFORMATION
  Report Type: Spontaneous
  Country: US (occurrence: None)
  Receive Date: 20240917
  Receipt Date: 20240917
  Transmission Date: 20241017
  Serious: Yes (Life-Threatening, Hospitalization)
  Sender: Public
  Company Number: None

PATIENT
  Age: 88 Year
  Sex: Male
  Weight: 81 kg

DRUGS (2)
  1. POLATUZUMAB VEDOTIN-PIIQ [Suspect]
     Active Substance: POLATUZUMAB VEDOTIN-PIIQ
     Indication: Diffuse large B-cell lymphoma
     Dosage: 145 MMG ONCE INTRAVENOUS?
     Route: 042
     Dates: start: 20240823, end: 20240823
  2. RITUXIMAB-PVVR [Concomitant]
     Active Substance: RITUXIMAB-PVVR
     Dates: start: 20240823, end: 20240823

REACTIONS (6)
  - Chills [None]
  - Dizziness [None]
  - Tachypnoea [None]
  - Sinus tachycardia [None]
  - Ventricular extrasystoles [None]
  - Oxygen saturation decreased [None]

NARRATIVE: CASE EVENT DATE: 20240823
